FAERS Safety Report 24688567 (Version 1)
Quarter: 2024Q4

REPORT INFORMATION
  Report Type: Spontaneous
  Country: US (occurrence: US)
  Receive Date: 20241202
  Receipt Date: 20241202
  Transmission Date: 20250114
  Serious: No
  Sender: EMCURE PHARMACEUTICALS LTD
  Company Number: US-AVET LIFESCIENCES LTD-2024-AVET-000434

PATIENT

DRUGS (2)
  1. BENAZEPRIL [Suspect]
     Active Substance: BENAZEPRIL HYDROCHLORIDE
     Indication: Product used for unknown indication
     Dosage: UNK
     Route: 065
     Dates: start: 2024
  2. Equate [Concomitant]
     Dosage: UNK

REACTIONS (5)
  - Incorrect dose administered [Unknown]
  - Asthenia [Unknown]
  - Cough [Unknown]
  - Poor quality sleep [Unknown]
  - Headache [Unknown]
